FAERS Safety Report 7336499-0 (Version None)
Quarter: 2011Q1

REPORT INFORMATION
  Report Type: 
  Country: None (occurrence: None)
  Receive Date: 20110307
  Receipt Date: 20110214
  Transmission Date: 20110831
  Serious: No
  Sender: FDA-Public Use
  Company Number: US-AMGEN-USASP2011008890

PATIENT
  Sex: Female

DRUGS (2)
  1. XGEVA [Suspect]
     Indication: METASTASES TO BONE
     Dosage: 120 MG, Q4WK
     Dates: start: 20110121
  2. ABRAXANE [Concomitant]

REACTIONS (3)
  - RASH [None]
  - ORAL PAIN [None]
  - GLOSSODYNIA [None]
